FAERS Safety Report 16897768 (Version 1)
Quarter: 2019Q4

REPORT INFORMATION
  Report Type: Spontaneous
  Country: NL (occurrence: NL)
  Receive Date: 20191009
  Receipt Date: 20191009
  Transmission Date: 20200122
  Serious: Yes (Other)
  Sender: FDA-Public Use
  Company Number: NL-TEVA-2019-NL-1118135

PATIENT
  Age: 29 Month
  Sex: Male
  Weight: 12 kg

DRUGS (1)
  1. AMOXICILLINE DRANK (SUSPENSIE), 50 MG/ML (MILLIGRAM PER MILLILITER) [Suspect]
     Active Substance: AMOXICILLIN
     Indication: EAR INFECTION
     Dosage: 3X PER DAY 4 ML - 105 ML TOTAL
     Dates: start: 20190224

REACTIONS (6)
  - Diarrhoea [Recovered/Resolved]
  - Rash papular [Recovered/Resolved]
  - Abnormal behaviour [Recovered/Resolved]
  - Tonsillar hypertrophy [Unknown]
  - Constipation [Recovered/Resolved]
  - Apnoea [Unknown]

NARRATIVE: CASE EVENT DATE: 20190225
